FAERS Safety Report 4380138-8 (Version None)
Quarter: 2004Q2

REPORT INFORMATION
  Report Type: 
  Country: None (occurrence: None)
  Receive Date: 20040614
  Receipt Date: 20040322
  Transmission Date: 20050107
  Serious: No
  Sender: FDA-Public Use
  Company Number: M04-341-090

PATIENT
  Age: 79 Year
  Sex: Female
  Weight: 79 kg

DRUGS (15)
  1. VELCADE [Suspect]
     Indication: MULTIPLE MYELOMA
     Dosage: 2.2: INTRAVENOUS BOLUS
     Route: 042
     Dates: start: 20040202, end: 20040308
  2. ARANESP [Concomitant]
  3. AREDIA [Concomitant]
  4. BUMEX [Concomitant]
  5. CLONIDINE HCL [Concomitant]
  6. DARVOCET-N(PROPACET) [Concomitant]
  7. NEUMEGA [Concomitant]
  8. NORVASC [Concomitant]
  9. PREDNISONE [Concomitant]
  10. PREVACID [Concomitant]
  11. SALICYLIC ACID [Concomitant]
  12. SYNTHROID [Concomitant]
  13. TOPROL-XL [Concomitant]
  14. TRAZODONE HCL [Concomitant]
  15. ZESTRIL [Concomitant]

REACTIONS (3)
  - DIZZINESS [None]
  - OEDEMA PERIPHERAL [None]
  - PLATELET COUNT DECREASED [None]
